FAERS Safety Report 7400273-7 (Version None)
Quarter: 2011Q2

REPORT INFORMATION
  Report Type: 
  Country: None (occurrence: None)
  Receive Date: 20110407
  Receipt Date: 20110328
  Transmission Date: 20111010
  Serious: Yes (Other)
  Sender: FDA-Public Use
  Company Number: US-ELI_LILLY_AND_COMPANY-US201104000105

PATIENT
  Sex: Male

DRUGS (27)
  1. CYMBALTA [Suspect]
     Dosage: 30 MG, UNK
     Dates: start: 20110224
  2. ZINC [Concomitant]
  3. NORTRIPTYLINE HCL [Concomitant]
  4. HYDROCODONE [Concomitant]
  5. CYMBALTA [Suspect]
     Dosage: 60 MG, QD
  6. ZOLOFT [Concomitant]
  7. CYMBALTA [Suspect]
     Indication: DEPRESSION
     Dosage: 30 MG, UNK
  8. ALPRAZOLAM [Concomitant]
  9. VITAMIN B-12 [Concomitant]
  10. PREDNISONE [Concomitant]
  11. FUROSEMIDE [Concomitant]
  12. COPPER [Concomitant]
  13. STOOL SOFTENER [Concomitant]
  14. CYMBALTA [Suspect]
     Dosage: 30 MG, QOD
  15. MYCOPHENOLATE MEFETIL [Concomitant]
  16. FOLIC ACID [Concomitant]
  17. CYMBALTA [Suspect]
     Dosage: 60 MG, UNK
  18. LYRICA [Concomitant]
     Dosage: 150 MG, EACH MORNING
  19. IRON [Concomitant]
  20. LUNESTA [Concomitant]
  21. CYMBALTA [Suspect]
     Dosage: 30 MG, QD
  22. TIZANIDINE [Concomitant]
  23. LYRICA [Concomitant]
     Dosage: 100 MG, EACH MORNING
  24. NUVIGIL [Concomitant]
  25. VITAMIN D [Concomitant]
  26. OXYCONTIN [Concomitant]
  27. GAMUNEX [Concomitant]

REACTIONS (11)
  - VISION BLURRED [None]
  - DIZZINESS [None]
  - PAIN [None]
  - HYPERHIDROSIS [None]
  - ASTHENIA [None]
  - MEMORY IMPAIRMENT [None]
  - DRY MOUTH [None]
  - BURNING SENSATION [None]
  - PARAESTHESIA [None]
  - MUSCULAR WEAKNESS [None]
  - NAUSEA [None]
